FAERS Safety Report 23397303 (Version 6)
Quarter: 2024Q2

REPORT INFORMATION
  Report Type: Spontaneous
  Country: US (occurrence: US)
  Receive Date: 20240112
  Receipt Date: 20240430
  Transmission Date: 20240715
  Serious: Yes (Hospitalization)
  Sender: FDA-Public Use
  Company Number: US-SA-2024SA004090

PATIENT

DRUGS (2)
  1. ALDURAZYME [Suspect]
     Active Substance: LARONIDASE
     Indication: Mucopolysaccharidosis
     Dosage: 26.1 MG, QW
     Route: 042
     Dates: start: 201610, end: 20231228
  2. ALDURAZYME [Suspect]
     Active Substance: LARONIDASE
     Dosage: 26.1 MG, QW
     Route: 042

REACTIONS (9)
  - Hypertension [Unknown]
  - Tachycardia [Unknown]
  - Exposure during pregnancy [Unknown]
  - Urinary tract infection [Unknown]
  - Chest pain [Recovered/Resolved]
  - Heart sounds abnormal [Unknown]
  - Troponin abnormal [Unknown]
  - Dyspnoea [Recovered/Resolved]
  - Infusion related reaction [Unknown]

NARRATIVE: CASE EVENT DATE: 20230401
